FAERS Safety Report 5337704-2 (Version None)
Quarter: 2007Q2

REPORT INFORMATION
  Report Type: 
  Country: None (occurrence: None)
  Receive Date: 20070315
  Receipt Date: 20060607
  Transmission Date: 20071010
  Serious: Yes (Other)
  Sender: FDA-Public Use
  Company Number: PHEH2005US13536

PATIENT
  Age: 55 Year
  Sex: Female

DRUGS (10)
  1. TRILEPTAL [Suspect]
     Indication: CONVULSION
     Dosage: 600 MG, BID, ORAL
     Route: 048
     Dates: start: 20040501, end: 20051201
  2. PHENOBARBITAL TAB [Concomitant]
  3. LEXAPRO [Concomitant]
  4. LORAZEPAM [Concomitant]
  5. LASIX [Concomitant]
  6. DIFLUCAN [Concomitant]
  7. PROTONIX [Concomitant]
  8. ZYRTEC [Concomitant]
  9. SINGULAIR [Concomitant]
  10. TIZANIDINE HCL [Concomitant]

REACTIONS (1)
  - LEUKOPENIA [None]
